FAERS Safety Report 4896285-8 (Version None)
Quarter: 2006Q1

REPORT INFORMATION
  Report Type: 
  Country: None (occurrence: None)
  Receive Date: 20060126
  Receipt Date: 20060120
  Transmission Date: 20060701
  Serious: Yes (Hospitalization)
  Sender: FDA-Public Use
  Company Number: Q06-004

PATIENT
  Age: 68 Year
  Sex: Male
  Weight: 82.1011 kg

DRUGS (7)
  1. SAMARIUM SM-153 LEXIDRONAM [Suspect]
     Indication: MULTIPLE MYELOMA
     Dosage: 0.25 MCI/KG
     Dates: start: 20051208
  2. VELCADE [Suspect]
     Indication: MULTIPLE MYELOMA
     Dosage: 1MG/M2 (1.9MG) IVP
     Dates: end: 20051205
  3. THALIDOMIDE [Concomitant]
  4. MEDROL [Concomitant]
  5. BIAXIN XL [Concomitant]
  6. ZOMETA [Concomitant]
  7. PROCRIT [Concomitant]

REACTIONS (3)
  - BLOOD CREATININE INCREASED [None]
  - DISEASE PROGRESSION [None]
  - HYPERKALAEMIA [None]
